FAERS Safety Report 7332046-8 (Version None)
Quarter: 2011Q1

REPORT INFORMATION
  Report Type: 
  Country: None (occurrence: None)
  Receive Date: 20110222
  Receipt Date: 20110208
  Transmission Date: 20110831
  Serious: Yes (Death, Hospitalization)
  Sender: FDA-Public Use
  Company Number: PL-000342

PATIENT
  Sex: Female
  Weight: 40 kg

DRUGS (8)
  1. HYDROCORTISONUM HEMISUCCINATUM [Concomitant]
  2. NAGLAZYME [Suspect]
     Indication: MUCOPOLYSACCHARIDOSIS VI
     Dosage: (40 MG, FREQUENCY UNKNOWN INTRAVENOUS DRIP) (DOSE AND FREQUENCY NOT REPORTED INTRAVENOUS DRIP)
     Route: 041
     Dates: start: 20100330, end: 20100412
  3. NAGLAZYME [Suspect]
     Indication: MUCOPOLYSACCHARIDOSIS VI
     Dosage: (40 MG, FREQUENCY UNKNOWN INTRAVENOUS DRIP) (DOSE AND FREQUENCY NOT REPORTED INTRAVENOUS DRIP)
     Route: 041
     Dates: start: 20100131
  4. FUROSEMIDE [Concomitant]
  5. DOPAMINE [Concomitant]
  6. PERFALGAN [Concomitant]
  7. CLEMASTINUM [Concomitant]
  8. VIVACOR /00984501/ [Concomitant]

REACTIONS (8)
  - ASCITES [None]
  - DISEASE COMPLICATION [None]
  - CARDIAC FAILURE [None]
  - CONGESTIVE CARDIOMYOPATHY [None]
  - OEDEMA PERIPHERAL [None]
  - HYPERTONIA [None]
  - LIVER INJURY [None]
  - RENAL IMPAIRMENT [None]
